FAERS Safety Report 25632505 (Version 1)
Quarter: 2025Q3

REPORT INFORMATION
  Report Type: Spontaneous
  Country: US (occurrence: None)
  Receive Date: 20250731
  Receipt Date: 20250731
  Transmission Date: 20251021
  Serious: Yes (Death)
  Sender: FDA-CTU
  Company Number: None

PATIENT
  Age: 50 Year
  Sex: Female
  Weight: 62.6 kg

DRUGS (1)
  1. CYANOCOBALAMIN\SEMAGLUTIDE [Suspect]
     Active Substance: CYANOCOBALAMIN\SEMAGLUTIDE
     Indication: Weight control
     Dosage: OTHER QUANTITY : 2.5ML INJECTION?FREQUENCY : WEEKLY?OTHER ROUTE : INJECTION (SELF) FROM VIAL?
     Route: 050
     Dates: start: 202302, end: 202403

REACTIONS (5)
  - Abdominal pain [None]
  - Vomiting [None]
  - Volvulus [None]
  - Gastrointestinal necrosis [None]
  - Internal haemorrhage [None]

NARRATIVE: CASE EVENT DATE: 20240313
